FAERS Safety Report 12730492 (Version 1)
Quarter: 2016Q3

REPORT INFORMATION
  Report Type: Spontaneous
  Country: PT (occurrence: PT)
  Receive Date: 20160909
  Receipt Date: 20160909
  Transmission Date: 20161109
  Serious: Yes (Disabling, Other)
  Sender: FDA-Public Use
  Company Number: PT-BAUSCH-BL-2016-022022

PATIENT
  Age: 78 Year
  Sex: Male

DRUGS (2)
  1. METRONIDAZOLE. [Suspect]
     Active Substance: METRONIDAZOLE
     Indication: WOUND INFECTION PSEUDOMONAS
     Route: 048
  2. CIPROFLOXACIN. [Suspect]
     Active Substance: CIPROFLOXACIN
     Indication: WOUND INFECTION PSEUDOMONAS
     Route: 048

REACTIONS (3)
  - Choking [Unknown]
  - Dyspnoea [Unknown]
  - Product use issue [Unknown]
